FAERS Safety Report 4307167-4 (Version None)
Quarter: 2004Q1

REPORT INFORMATION
  Report Type: 
  Country: None (occurrence: None)
  Receive Date: 20040225
  Receipt Date: 20040211
  Transmission Date: 20041129
  Serious: Yes (Life-Threatening, Hospitalization)
  Sender: FDA-Public Use
  Company Number: 2004-BP-00997AU

PATIENT
  Age: 66 Year
  Sex: Male

DRUGS (8)
  1. MOBIC [Suspect]
     Indication: OSTEOARTHRITIS
     Dosage: 15 MG (NR, 15 MG DAILY) PO
     Route: 048
     Dates: start: 20030315
  2. BIAXSIG (ROXITHROMYCIN) (TA) [Suspect]
     Indication: INFECTION
     Dosage: 300 MG (NR, 300 MG DAILY) PO
     Route: 048
     Dates: start: 20030401, end: 20030408
  3. BIAXSIG (ROXITHROMYCIN) (TA) [Suspect]
     Indication: INFECTION PARASITIC
     Dosage: 300 MG (NR, 300 MG DAILY) PO
     Route: 048
     Dates: start: 20030401, end: 20030408
  4. LIPITOR (ATORVASTATIN) (NR) [Concomitant]
  5. NEXIUM (NR) [Concomitant]
  6. PLAVIX [Concomitant]
  7. TRITACE (RAMIPRIL) (NR) [Concomitant]
  8. KENACOMB  (MYCOLOG) [Concomitant]

REACTIONS (6)
  - ABDOMINAL PAIN UPPER [None]
  - DISCOMFORT [None]
  - DYSPNOEA [None]
  - GASTRIC CANCER [None]
  - HAEMOGLOBIN DECREASED [None]
  - LETHARGY [None]
